FAERS Safety Report 23751130 (Version 1)
Quarter: 2024Q2

REPORT INFORMATION
  Report Type: Spontaneous
  Country: US (occurrence: US)
  Receive Date: 20240417
  Receipt Date: 20240417
  Transmission Date: 20240716
  Serious: Yes (Other)
  Sender: FDA-Public Use
  Company Number: US-REGENERON PHARMACEUTICALS, INC.-2024-058369

PATIENT
  Sex: Female

DRUGS (6)
  1. EYLEA [Suspect]
     Active Substance: AFLIBERCEPT
     Indication: Diabetic retinopathy
     Dosage: 2 MG, FORMULATION: UNKNOWN
  2. EYLEA [Suspect]
     Active Substance: AFLIBERCEPT
     Indication: Macular oedema
     Dosage: 2 MG, EVERY 5-6 WEEKS, FORMULATION: UNKNOWN
     Dates: start: 2023
  3. MOUNJARO [Concomitant]
     Active Substance: TIRZEPATIDE
     Indication: Diabetes mellitus
  4. OZEMPIC [Concomitant]
     Active Substance: SEMAGLUTIDE
     Indication: Diabetes mellitus
  5. AVASTIN [Concomitant]
     Active Substance: BEVACIZUMAB
     Indication: Diabetic retinopathy
  6. AVASTIN [Concomitant]
     Active Substance: BEVACIZUMAB
     Indication: Macular oedema

REACTIONS (11)
  - Diabetes mellitus inadequate control [Unknown]
  - Cataract [Recovered/Resolved]
  - Eye haemorrhage [Unknown]
  - Feeling abnormal [Unknown]
  - Visual impairment [Unknown]
  - Dry eye [Unknown]
  - General physical condition abnormal [Unknown]
  - Illness [Unknown]
  - Eye disorder [Unknown]
  - Ocular hyperaemia [Unknown]
  - Product dose omission issue [Recovered/Resolved]

NARRATIVE: CASE EVENT DATE: 20230101
